FAERS Safety Report 7984559-3 (Version None)
Quarter: 2011Q4

REPORT INFORMATION
  Report Type: 
  Country: None (occurrence: None)
  Receive Date: 20111216
  Receipt Date: 20111208
  Transmission Date: 20120403
  Serious: Yes (Other)
  Sender: FDA-Public Use
  Company Number: US-PURDUE-USA-2011-0076198

PATIENT
  Sex: Male
  Weight: 78.458 kg

DRUGS (3)
  1. SOMA [Concomitant]
     Indication: PRODUCT USED FOR UNKNOWN INDICATION
     Dosage: 350 MG, QD PRN
  2. BUTRANS [Suspect]
     Dosage: 20 MCG, Q1H
     Dates: start: 20110607, end: 20111025
  3. BUTRANS [Suspect]
     Indication: ARTHRALGIA
     Dosage: 10 MCG, Q1H
     Route: 062
     Dates: start: 20110405, end: 20110607

REACTIONS (8)
  - INFLUENZA [None]
  - HEART RATE INCREASED [None]
  - DYSPNOEA [None]
  - CHEST DISCOMFORT [None]
  - PROSTATE CANCER [None]
  - BLADDER CANCER [None]
  - INCREASED UPPER AIRWAY SECRETION [None]
  - PAIN [None]
